FAERS Safety Report 9404310 (Version 2)
Quarter: 2013Q3

REPORT INFORMATION
  Report Type: Spontaneous
  Country: JP (occurrence: JP)
  Receive Date: 20130717
  Receipt Date: 20130903
  Transmission Date: 20140515
  Serious: Yes (Death, Hospitalization)
  Sender: FDA-Public Use
  Company Number: JP-ELI_LILLY_AND_COMPANY-JP201307003041

PATIENT
  Age: 70 Year
  Sex: Male
  Weight: 82 kg

DRUGS (15)
  1. ALIMTA [Suspect]
     Indication: LUNG ADENOCARCINOMA STAGE III
     Dosage: 500 MG/M2, UNK
     Route: 042
     Dates: start: 20130426, end: 20130517
  2. LYRICA [Suspect]
     Indication: CANCER PAIN
     Dosage: 75 MG, BID
     Route: 048
     Dates: start: 20130523, end: 20130528
  3. PANVITAN [Concomitant]
     Dosage: 1 G, UNK
     Route: 048
     Dates: start: 20130419, end: 20130528
  4. FRESMIN S [Concomitant]
     Dosage: UNK
     Route: 030
     Dates: start: 20130419
  5. OXYFAST [Concomitant]
     Indication: CANCER PAIN
     Dosage: 1.5 MG, UNK
     Route: 042
     Dates: start: 20130523
  6. OXYFAST [Concomitant]
     Dosage: 3.0 MG, UNK
     Route: 042
     Dates: end: 20130527
  7. SILODOSIN [Concomitant]
     Indication: BENIGN PROSTATIC HYPERPLASIA
     Dosage: 4 MG, BID
     Route: 048
     Dates: end: 20130528
  8. UBRETID [Concomitant]
     Indication: DYSURIA
     Dosage: 5 MG, QD
     Route: 048
     Dates: end: 20130528
  9. VASOMET [Concomitant]
     Indication: BENIGN PROSTATIC HYPERPLASIA
     Dosage: 0.5 MG, BID
     Route: 048
     Dates: end: 20130528
  10. LIVALO [Concomitant]
     Indication: DYSLIPIDAEMIA
     Dosage: 1 MG, QD
     Route: 048
     Dates: end: 20130528
  11. ADALAT CR                               /SCH/ [Concomitant]
     Indication: HYPERTENSION
     Dosage: 20 MG, QD
     Route: 048
     Dates: end: 20130528
  12. PURSENNID [Concomitant]
     Indication: CONSTIPATION
     Dosage: 12 MG, QD
     Route: 048
     Dates: end: 20130528
  13. MAGNESIUM OXIDE [Concomitant]
     Indication: CONSTIPATION
     Dosage: 0.5 MG, UNK
     Route: 048
     Dates: end: 20130528
  14. XYZAL [Concomitant]
     Indication: DERMATITIS ALLERGIC
     Dosage: 5 MG, QD
     Route: 048
     Dates: end: 20130528
  15. CELECOX [Concomitant]
     Indication: CANCER PAIN
     Dosage: 1 MG, BID
     Route: 048
     Dates: end: 20130528

REACTIONS (2)
  - Interstitial lung disease [Fatal]
  - Metastases to spine [Unknown]
